FAERS Safety Report 6650102-4 (Version None)
Quarter: 2010Q1

REPORT INFORMATION
  Report Type: 
  Country: None (occurrence: None)
  Receive Date: 20100325
  Receipt Date: 20091221
  Transmission Date: 20100710
  Serious: No
  Sender: FDA-Public Use
  Company Number: US-KINGPHARMUSA00001-K200901601

PATIENT
  Age: 63 Year
  Sex: Male
  Weight: 70.295 kg

DRUGS (3)
  1. ALTACE [Suspect]
     Dosage: 2.5 MG, QD
     Route: 048
     Dates: end: 20090101
  2. ALTACE [Suspect]
     Dosage: 2.5 MG, QOD
     Dates: start: 20091201
  3. LIPITOR [Concomitant]
     Dosage: 20 MG, QD

REACTIONS (1)
  - COUGH [None]
